FAERS Safety Report 7376184-2 (Version None)
Quarter: 2011Q1

REPORT INFORMATION
  Report Type: 
  Country: None (occurrence: None)
  Receive Date: 20110325
  Receipt Date: 20110322
  Transmission Date: 20110831
  Serious: Yes (Other)
  Sender: FDA-Public Use
  Company Number: US-CEPHALON-2011000619

PATIENT
  Sex: Male

DRUGS (8)
  1. ZOLOFT [Concomitant]
  2. BENICAR [Concomitant]
  3. LEVOTHYROXINE SODIUM [Concomitant]
  4. EFFEXOR [Concomitant]
  5. LIBRIUM [Concomitant]
  6. GABAPENTIN [Concomitant]
  7. NUVIGIL [Suspect]
     Route: 048
     Dates: start: 20110101, end: 20110101
  8. ACIPHEX [Concomitant]

REACTIONS (3)
  - RASH ERYTHEMATOUS [None]
  - DRUG HYPERSENSITIVITY [None]
  - RASH MACULAR [None]
